FAERS Safety Report 8881707 (Version 1)
Quarter: 2012Q4

REPORT INFORMATION
  Report Type: 
  Country: BE (occurrence: BE)
  Receive Date: 20121105
  Receipt Date: 20121105
  Transmission Date: 20130627
  Serious: Yes (Hospitalization)
  Sender: FDA-Public Use
  Company Number: BE-JNJFOC-20121017602

PATIENT
  Sex: Male

DRUGS (9)
  1. XARELTO [Suspect]
     Indication: ATRIAL FIBRILLATION
     Route: 048
     Dates: start: 20120904, end: 201210
  2. XARELTO [Suspect]
     Indication: CEREBROVASCULAR ACCIDENT PROPHYLAXIS
     Route: 048
     Dates: start: 20120904, end: 201210
  3. PANTOPRAZOLE [Concomitant]
     Route: 065
  4. BISOPROLOL [Concomitant]
     Indication: HYPERTENSION
     Route: 065
  5. CRESTOR [Concomitant]
     Indication: HYPERCHOLESTEROLAEMIA
     Route: 065
  6. EZETROL [Concomitant]
     Route: 065
  7. SINTROM [Concomitant]
     Route: 065
     Dates: end: 20120903
  8. ASAFLOW [Concomitant]
     Route: 065
  9. LASIX [Concomitant]
     Route: 065

REACTIONS (1)
  - Haemangioma [Recovered/Resolved]
